FAERS Safety Report 4497208-6 (Version None)
Quarter: 2004Q4

REPORT INFORMATION
  Report Type: 
  Country: None (occurrence: None)
  Receive Date: 20041110
  Receipt Date: 20041103
  Transmission Date: 20050328
  Serious: Yes (Other)
  Sender: FDA-Public Use
  Company Number: US-BRISTOL-MYERS SQUIBB COMPANY-12755385

PATIENT
  Age: 51 Year
  Sex: Male
  Weight: 91 kg

DRUGS (7)
  1. ERBITUX [Suspect]
     Indication: COLORECTAL CANCER METASTATIC
     Dosage: LOADING DOSE, D/C
     Route: 042
     Dates: start: 20041012, end: 20041012
  2. ALOXI [Concomitant]
     Indication: PREMEDICATION
     Dates: start: 20041012, end: 20041012
  3. BENADRYL [Concomitant]
     Indication: PREMEDICATION
     Dates: start: 20041012, end: 20041012
  4. DECADRON [Concomitant]
     Indication: PREMEDICATION
     Dates: start: 20041012, end: 20041012
  5. LORTAB [Concomitant]
  6. DURAGESIC [Concomitant]
  7. ATIVAN [Concomitant]

REACTIONS (3)
  - BACK PAIN [None]
  - HYPERTENSION [None]
  - RASH [None]
